FAERS Safety Report 5088085-3 (Version None)
Quarter: 2006Q3

REPORT INFORMATION
  Report Type: 
  Country: None (occurrence: None)
  Receive Date: 20060727
  Receipt Date: 20060405
  Transmission Date: 20061208
  Serious: Yes (Other)
  Sender: FDA-Public Use
  Company Number: 2006028548

PATIENT
  Age: 75 Year
  Sex: Male
  Weight: 117.9352 kg

DRUGS (3)
  1. LYRICA [Suspect]
     Indication: NEUROPATHY PERIPHERAL
     Dosage: 75 MG (25 MG, 3 IN 1 D)
     Dates: start: 20060223
  2. TEGRETOL [Suspect]
     Indication: NEUROPATHY PERIPHERAL
     Dosage: (3 IN 1 D)
     Dates: start: 20060223
  3. ALL OTHER THERAPEUTIC PRODUCTS (ALL OTHER THERAPEUTIC PRODUCTS) [Concomitant]

REACTIONS (2)
  - DIZZINESS [None]
  - FEELING DRUNK [None]
